FAERS Safety Report 7207737-X (Version None)
Quarter: 2011Q1

REPORT INFORMATION
  Report Type: 
  Country: None (occurrence: None)
  Receive Date: 20110103
  Receipt Date: 20101229
  Transmission Date: 20110831
  Serious: Yes (Other)
  Sender: FDA-Public Use
  Company Number: US-JNJFOC-20101209272

PATIENT

DRUGS (2)
  1. RISPERDAL [Suspect]
     Indication: AFFECTIVE DISORDER
     Route: 065
  2. ABILIFY [Suspect]
     Indication: AFFECTIVE DISORDER
     Route: 065

REACTIONS (2)
  - FLUID RETENTION [None]
  - WEIGHT INCREASED [None]
